FAERS Safety Report 5746014-0 (Version None)
Quarter: 2008Q2

REPORT INFORMATION
  Report Type: 
  Country: None (occurrence: None)
  Receive Date: 20080522
  Receipt Date: 20080514
  Transmission Date: 20081010
  Serious: No
  Sender: FDA-Public Use
  Company Number: US-BAYER-200823014NA

PATIENT
  Age: 27 Year
  Sex: Female
  Weight: 56 kg

DRUGS (1)
  1. MIRENA [Suspect]
     Indication: CONTRACEPTION
     Dates: start: 20080201

REACTIONS (3)
  - ABDOMINAL PAIN LOWER [None]
  - GENITAL HAEMORRHAGE [None]
  - PRESYNCOPE [None]
